FAERS Safety Report 6767626-1 (Version None)
Quarter: 2010Q2

REPORT INFORMATION
  Report Type: 
  Country: None (occurrence: None)
  Receive Date: 20100614
  Receipt Date: 20100601
  Transmission Date: 20101027
  Serious: Yes (Hospitalization, Other)
  Sender: FDA-Public Use
  Company Number: US-ELI_LILLY_AND_COMPANY-US201003000908

PATIENT
  Sex: Female

DRUGS (7)
  1. FORTEO [Suspect]
     Dosage: 20 UG, DAILY (1/D)
     Route: 058
  2. DIOVAN [Concomitant]
     Dosage: 80 MG, DAILY (1/D)
  3. SYNTHROID [Concomitant]
     Dosage: 100 MG, DAILY (1/D)
  4. DYAZIDE [Concomitant]
     Dosage: UNK, DAILY (1/D)
  5. OS-CAL [Concomitant]
     Dosage: 500 MG, DAILY (1/D)
  6. MULTIPLE VITAMIN [Concomitant]
     Dosage: UNK, DAILY (1/D)
  7. ASPIRIN [Concomitant]
     Dosage: 1 D/F, DAILY (1/D)

REACTIONS (2)
  - CAROTID BODY TUMOUR [None]
  - MIGRAINE WITH AURA [None]
